FAERS Safety Report 6658775-7 (Version None)
Quarter: 2010Q1

REPORT INFORMATION
  Report Type: 
  Country: None (occurrence: None)
  Receive Date: 20100330
  Receipt Date: 20100324
  Transmission Date: 20100710
  Serious: Yes (Death, Other)
  Sender: FDA-Public Use
  Company Number: PHHY2009JP53356

PATIENT
  Age: 67 Year
  Sex: Female

DRUGS (4)
  1. GLEEVEC [Suspect]
     Indication: ACUTE BIPHENOTYPIC LEUKAEMIA
     Dosage: 400 MG/DAY
     Route: 048
  2. ENOCITABINE [Suspect]
  3. ACLARUBICIN [Suspect]
  4. CHEMOTHERAPEUTICS,OTHER [Concomitant]
     Indication: ACUTE BIPHENOTYPIC LEUKAEMIA

REACTIONS (14)
  - BLISTER [None]
  - BONE MARROW FAILURE [None]
  - ECTHYMA [None]
  - EYE DISORDER [None]
  - LOSS OF CONSCIOUSNESS [None]
  - MULTIPLE-DRUG RESISTANCE [None]
  - NEUTROPENIA [None]
  - PERIORBITAL OEDEMA [None]
  - PERIPHERAL VASCULAR DISORDER [None]
  - PSEUDOMONAL SEPSIS [None]
  - PYREXIA [None]
  - SEPTIC SHOCK [None]
  - SKIN ATROPHY [None]
  - SKIN DISCOLOURATION [None]
